FAERS Safety Report 25276560 (Version 1)
Quarter: 2025Q2

REPORT INFORMATION
  Report Type: Other
  Country: CA (occurrence: CA)
  Receive Date: 20250507
  Receipt Date: 20250507
  Transmission Date: 20250716
  Serious: Yes (Other)
  Sender: BIONPHARMA INC.
  Company Number: CA-Bion-014895

PATIENT
  Age: 39 Year
  Sex: Female

DRUGS (1)
  1. IBUPROFEN [Suspect]
     Active Substance: IBUPROFEN
     Indication: Abdominal pain

REACTIONS (2)
  - Small intestine ulcer [Unknown]
  - Drug ineffective [Not Recovered/Not Resolved]
